FAERS Safety Report 19821373 (Version 1)
Quarter: 2021Q3

REPORT INFORMATION
  Report Type: Spontaneous
  Country: US (occurrence: US)
  Receive Date: 20210913
  Receipt Date: 20210913
  Transmission Date: 20211014
  Serious: No
  Sender: FDA-Public Use
  Company Number: US-ASTRAZENECA-2021A717709

PATIENT
  Sex: Male

DRUGS (1)
  1. BUDESONIDE AND FORMOTEROL [Suspect]
     Active Substance: BUDESONIDE\FORMOTEROL
     Indication: ASTHMA
     Dosage: UNKNOWN DOSE AND FREQUENCY UNKNOWN
     Route: 055
     Dates: start: 20210813

REACTIONS (5)
  - Intentional product misuse [Not Recovered/Not Resolved]
  - Dyspnoea [Not Recovered/Not Resolved]
  - Condition aggravated [Not Recovered/Not Resolved]
  - Visual impairment [Not Recovered/Not Resolved]
  - Device malfunction [Unknown]
